FAERS Safety Report 15959645 (Version 1)
Quarter: 2019Q1

REPORT INFORMATION
  Report Type: Spontaneous
  Country: US (occurrence: US)
  Receive Date: 20190214
  Receipt Date: 20190214
  Transmission Date: 20190417
  Serious: Yes (Life-Threatening, Hospitalization)
  Sender: FDA-Public Use
  Company Number: US-TEVA-2019-US-1010312

PATIENT
  Age: 41 Year
  Sex: Female

DRUGS (2)
  1. FLUOXETINE [Suspect]
     Active Substance: FLUOXETINE HYDROCHLORIDE
     Indication: DEPRESSION
     Route: 048
  2. ACETAMINOPHEN. [Suspect]
     Active Substance: ACETAMINOPHEN
     Indication: VIRAL INFECTION
     Route: 065

REACTIONS (6)
  - Mouth ulceration [Unknown]
  - Hepatomegaly [Unknown]
  - Jaundice [Unknown]
  - Drug-induced liver injury [Recovering/Resolving]
  - Stevens-Johnson syndrome [Recovering/Resolving]
  - Acute hepatic failure [Unknown]
